FAERS Safety Report 25396304 (Version 1)
Quarter: 2025Q2

REPORT INFORMATION
  Report Type: Spontaneous
  Country: CN (occurrence: CN)
  Receive Date: 20250604
  Receipt Date: 20250604
  Transmission Date: 20250717
  Serious: Yes (Hospitalization)
  Sender: ELI LILLY AND COMPANY
  Company Number: CN-Merck Healthcare KGaA-2025026629

PATIENT
  Age: 79 Year
  Sex: Male
  Weight: 43 kg

DRUGS (7)
  1. ERBITUX [Suspect]
     Active Substance: CETUXIMAB
     Indication: Hypopharyngeal cancer
     Route: 041
     Dates: start: 20250322, end: 20250322
  2. TORIPALIMAB [Suspect]
     Active Substance: TORIPALIMAB
     Indication: Hypopharyngeal cancer
     Dosage: 240 MG, DAILY
     Route: 041
     Dates: start: 20250322, end: 20250322
  3. DOCETAXEL [Suspect]
     Active Substance: DOCETAXEL
     Indication: Hypopharyngeal cancer
     Dosage: 70 MG, DAILY
     Route: 041
     Dates: start: 20250323, end: 20250324
  4. NEDAPLATIN [Suspect]
     Active Substance: NEDAPLATIN
     Indication: Hypopharyngeal cancer
     Dosage: 90 MG, DAILY
     Route: 041
     Dates: start: 20250323, end: 20250324
  5. SODIUM CHLORIDE [Concomitant]
     Active Substance: SODIUM CHLORIDE
     Indication: Hypopharyngeal cancer
     Dosage: 100 ML, DAILY
     Route: 041
     Dates: start: 20250322, end: 20250322
  6. SODIUM CHLORIDE [Concomitant]
     Active Substance: SODIUM CHLORIDE
     Dosage: 250 UNK
     Route: 041
     Dates: start: 20250323, end: 20250324
  7. SODIUM CHLORIDE [Concomitant]
     Active Substance: SODIUM CHLORIDE
     Dosage: 500 UNK
     Route: 041
     Dates: start: 20250323, end: 20250324

REACTIONS (1)
  - Myelosuppression [Recovering/Resolving]

NARRATIVE: CASE EVENT DATE: 20250328
